FAERS Safety Report 26042645 (Version 1)
Quarter: 2025Q4

REPORT INFORMATION
  Report Type: Report from Study
  Country: EU (occurrence: EU)
  Receive Date: 20251113
  Receipt Date: 20251113
  Transmission Date: 20260118
  Serious: Yes (Other)
  Sender: PFIZER
  Company Number: EU-PFIZER INC-PV202500132501

PATIENT
  Sex: Male

DRUGS (5)
  1. DOXORUBICIN HYDROCHLORIDE [Suspect]
     Active Substance: DOXORUBICIN HYDROCHLORIDE
     Indication: Primary effusion lymphoma
     Dosage: UNK, CYCLIC (4 CYCLES)
  2. VINCRISTINE SULFATE [Suspect]
     Active Substance: VINCRISTINE SULFATE
     Indication: Primary effusion lymphoma
     Dosage: UNK, CYCLIC (4 CYCLES)
  3. BORTEZOMIB [Suspect]
     Active Substance: BORTEZOMIB
     Indication: Primary effusion lymphoma
     Dosage: UNK, CYCLIC (4 CYCLES)
  4. CYCLOPHOSPHAMIDE [Suspect]
     Active Substance: CYCLOPHOSPHAMIDE
     Indication: Primary effusion lymphoma
     Dosage: UNK, CYCLIC (4 CYCLES)
  5. PREDNISONE [Suspect]
     Active Substance: PREDNISONE
     Indication: Primary effusion lymphoma
     Dosage: UNK, CYCLIC (4 CYCLES)

REACTIONS (1)
  - Toxicity to various agents [Unknown]
